FAERS Safety Report 20540254 (Version 1)
Quarter: 2022Q1

REPORT INFORMATION
  Report Type: Spontaneous
  Country: CA (occurrence: CA)
  Receive Date: 20220302
  Receipt Date: 20220302
  Transmission Date: 20220424
  Serious: Yes (Other)
  Sender: FDA-Public Use
  Company Number: CA-JNJFOC-20211143697

PATIENT
  Age: 66 Year
  Sex: Male
  Weight: 120 kg

DRUGS (1)
  1. REMICADE [Suspect]
     Active Substance: INFLIXIMAB
     Indication: Crohn^s disease
     Route: 042

REACTIONS (11)
  - Nephrolithiasis [Recovered/Resolved]
  - Decreased appetite [Recovered/Resolved]
  - Extravasation [Recovered/Resolved]
  - Neurological symptom [Recovered/Resolved]
  - Weight decreased [Recovered/Resolved]
  - Infusion site pain [Recovered/Resolved]
  - Heart rate decreased [Recovered/Resolved]
  - Condition aggravated [Recovered/Resolved]
  - Tooth infection [Recovered/Resolved]
  - Intentional product use issue [Recovered/Resolved]
  - Off label use [Recovered/Resolved]
